FAERS Safety Report 23453199 (Version 1)
Quarter: 2024Q1

REPORT INFORMATION
  Report Type: Spontaneous
  Country: AU (occurrence: AU)
  Receive Date: 20240129
  Receipt Date: 20240129
  Transmission Date: 20240410
  Serious: Yes (Other)
  Sender: FDA-Public Use
  Company Number: AU-NAPPMUNDI-GBR-2024-0113871

PATIENT
  Sex: Female

DRUGS (1)
  1. NORSPAN [Suspect]
     Active Substance: BUPRENORPHINE
     Indication: Pain
     Dosage: 15MCG/HR
     Route: 062

REACTIONS (3)
  - Hypersensitivity [Unknown]
  - Infection [Unknown]
  - Skin weeping [Unknown]

NARRATIVE: CASE EVENT DATE: 20240121
